FAERS Safety Report 5657316-0 (Version None)
Quarter: 2008Q1

REPORT INFORMATION
  Report Type: 
  Country: None (occurrence: None)
  Receive Date: 20080310
  Receipt Date: 20080228
  Transmission Date: 20080703
  Serious: Yes (Hospitalization)
  Sender: FDA-Public Use
  Company Number: PHBS2008AT00852

PATIENT
  Age: 45 Year
  Sex: Female
  Weight: 70 kg

DRUGS (1)
  1. LESCOL [Suspect]
     Indication: TYPE IIA HYPERLIPIDAEMIA
     Dosage: 80 MG/D
     Route: 048
     Dates: start: 20040101, end: 20070901

REACTIONS (5)
  - DERMATOMYOSITIS [None]
  - ERYTHEMA [None]
  - PERIORBITAL OEDEMA [None]
  - POIKILODERMA [None]
  - RASH [None]
